FAERS Safety Report 24075368 (Version 1)
Quarter: 2024Q3

REPORT INFORMATION
  Report Type: Spontaneous
  Country: US (occurrence: US)
  Receive Date: 20240710
  Receipt Date: 20240710
  Transmission Date: 20241017
  Serious: No
  Sender: UNITED THERAPEUTICS
  Company Number: US-UNITED THERAPEUTICS-UNT-2024-012967

PATIENT
  Sex: Female

DRUGS (6)
  1. TYVASO [Suspect]
     Active Substance: TREPROSTINIL
     Indication: Pulmonary arterial hypertension
     Dosage: 72 ?G, QID
  2. TYVASO [Suspect]
     Active Substance: TREPROSTINIL
     Dosage: UNK
  3. OFEV [Concomitant]
     Active Substance: NINTEDANIB
     Indication: Idiopathic pulmonary fibrosis
     Dosage: 150 MG, BID
     Dates: start: 20190722
  4. OFEV [Concomitant]
     Active Substance: NINTEDANIB
     Indication: Pulmonary hypertension
  5. OFEV [Concomitant]
     Active Substance: NINTEDANIB
     Indication: Lung disorder
  6. OFEV [Concomitant]
     Active Substance: NINTEDANIB
     Indication: Hypoxia

REACTIONS (4)
  - Bendopnoea [Unknown]
  - Dyspnoea exertional [Unknown]
  - Dyspnoea [Unknown]
  - Chest pain [Unknown]
